FAERS Safety Report 7924283-6 (Version None)
Quarter: 2011Q4

REPORT INFORMATION
  Report Type: 
  Country: None (occurrence: None)
  Receive Date: 20111117
  Receipt Date: 20110321
  Transmission Date: 20120403
  Serious: No
  Sender: FDA-Public Use
  Company Number: US-AMGEN-USASP2011015474

PATIENT
  Age: 59 Year
  Sex: Male

DRUGS (2)
  1. ZOLOFT [Concomitant]
     Dosage: 25 MG, UNK
  2. ENBREL [Suspect]
     Indication: PRODUCT USED FOR UNKNOWN INDICATION
     Dosage: 50 MG, QWK
     Route: 058

REACTIONS (2)
  - COUGH [None]
  - NASOPHARYNGITIS [None]
